FAERS Safety Report 4350741-X (Version None)
Quarter: 2004Q2

REPORT INFORMATION
  Report Type: 
  Country: None (occurrence: None)
  Receive Date: 20040428
  Receipt Date: 20040412
  Transmission Date: 20050107
  Serious: Yes (Hospitalization, Other)
  Sender: FDA-Public Use
  Company Number: USA040464750

PATIENT
  Age: 73 Year
  Sex: Female
  Weight: 59 kg

DRUGS (4)
  1. FORTEO [Suspect]
     Indication: OSTEOPOROSIS
     Dosage: 20 UG DAY
     Dates: start: 20040101
  2. LASIX [Concomitant]
  3. ULTRAM [Concomitant]
  4. VITAMIN B-12 [Concomitant]

REACTIONS (2)
  - NASOPHARYNGITIS [None]
  - PLEURAL EFFUSION [None]
